FAERS Safety Report 17315293 (Version 2)
Quarter: 2020Q3

REPORT INFORMATION
  Report Type: Spontaneous
  Country: GB (occurrence: GB)
  Receive Date: 20200124
  Receipt Date: 20200902
  Transmission Date: 20201102
  Serious: Yes (Hospitalization)
  Sender: FDA-Public Use
  Company Number: GB-VERTEX PHARMACEUTICALS-2020-000928

PATIENT
  Age: 15 Year
  Sex: Female

DRUGS (4)
  1. PROMIXIN [THIAMPHENICOL] [Concomitant]
     Active Substance: THIAMPHENICOL
  2. SYMKEVI [Suspect]
     Active Substance: IVACAFTOR\TEZACAFTOR
     Indication: CYSTIC FIBROSIS
     Dosage: 100MG TEZACAFTOR, 150 MG IVACAFTOR, QD
     Route: 048
     Dates: start: 201912
  3. PULMOZYME [Concomitant]
     Active Substance: DORNASE ALFA
  4. KALYDECO [Suspect]
     Active Substance: IVACAFTOR
     Indication: CYSTIC FIBROSIS
     Dosage: 150 MG IVACAFTOR, QD
     Route: 048
     Dates: start: 201912

REACTIONS (2)
  - Lower respiratory tract infection [Unknown]
  - Decreased appetite [Unknown]

NARRATIVE: CASE EVENT DATE: 20200106
